FAERS Safety Report 22326991 (Version 3)
Quarter: 2023Q2

REPORT INFORMATION
  Report Type: Spontaneous
  Country: US (occurrence: US)
  Receive Date: 20230516
  Receipt Date: 20230526
  Transmission Date: 20230722
  Serious: No
  Sender: FDA-Public Use
  Company Number: US-002147023-NVSC2023US112115

PATIENT
  Age: 68 Year
  Sex: Male
  Weight: 130.63 kg

DRUGS (1)
  1. LEQVIO [Suspect]
     Active Substance: INCLISIRAN SODIUM
     Indication: Low density lipoprotein increased
     Dosage: UNK, EVERY 3 MONTHS (ONE SINGLE DOSE)
     Route: 058
     Dates: start: 20230515, end: 20230515

REACTIONS (3)
  - Haematuria [Recovered/Resolved]
  - Pollakiuria [Recovered/Resolved]
  - Blood urine present [Recovering/Resolving]

NARRATIVE: CASE EVENT DATE: 20230515
